FAERS Safety Report 4355559-X (Version None)
Quarter: 2004Q2

REPORT INFORMATION
  Report Type: 
  Country: None (occurrence: None)
  Receive Date: 20040430
  Receipt Date: 20030602
  Transmission Date: 20050107
  Serious: Yes (Hospitalization)
  Sender: FDA-Public Use
  Company Number: KDL039052

PATIENT
  Age: 83 Year
  Sex: Female
  Weight: 55.8 kg

DRUGS (8)
  1. EPOGEN [Suspect]
     Indication: ANAEMIA OF MALIGNANT DISEASE
     Dosage: DAILY, SC
     Route: 058
     Dates: start: 20021001
  2. FUROSEMIDE [Concomitant]
  3. AMLODIPINE BESYLATE [Concomitant]
  4. ISOSORBIDE [Concomitant]
  5. LEVOYXL [Concomitant]
  6. TOLTERODINE TARTRATE [Concomitant]
  7. VALSARTAN [Concomitant]
  8. METOPROLOL [Concomitant]

REACTIONS (4)
  - COUGH [None]
  - HYPERSENSITIVITY [None]
  - NASOPHARYNGITIS [None]
  - THROMBOSIS [None]
